FAERS Safety Report 6769944-X (Version None)
Quarter: 2010Q2

REPORT INFORMATION
  Report Type: 
  Country: None (occurrence: None)
  Receive Date: 20100615
  Receipt Date: 20100605
  Transmission Date: 20101027
  Serious: Yes (Hospitalization)
  Sender: FDA-Public Use
  Company Number: A0864741A

PATIENT
  Sex: Male
  Weight: 55 kg

DRUGS (4)
  1. SERETIDE [Suspect]
     Indication: EMPHYSEMA
     Route: 055
     Dates: start: 20060101
  2. COMBIVENT [Concomitant]
     Route: 055
     Dates: start: 20060101
  3. LOSARTAN POTASSIUM [Concomitant]
     Dosage: 1TAB PER DAY
     Route: 048
     Dates: start: 20080101
  4. NATRILIX SR [Concomitant]
     Dosage: 1TAB PER DAY
     Route: 048

REACTIONS (2)
  - DYSPNOEA [None]
  - INFLUENZA [None]
